FAERS Safety Report 17609362 (Version 2)
Quarter: 2021Q1

REPORT INFORMATION
  Report Type: Spontaneous
  Country: US (occurrence: US)
  Receive Date: 20200401
  Receipt Date: 20210212
  Transmission Date: 20210419
  Serious: Yes (Hospitalization)
  Sender: FDA-Public Use
  Company Number: US-SA-2020SA078784

PATIENT
  Sex: Female

DRUGS (24)
  1. ONDANSETRON [Concomitant]
     Active Substance: ONDANSETRON
  2. EMSGRIP [Concomitant]
  3. DEXTROAMPHETAMINE PHOSPHATE [Concomitant]
  4. BETAMETHASONE. [Concomitant]
     Active Substance: BETAMETHASONE
  5. TRAZODONE [Concomitant]
     Active Substance: TRAZODONE HYDROCHLORIDE
  6. PREDNISONE. [Concomitant]
     Active Substance: PREDNISONE
  7. CIPROVIT [Concomitant]
  8. BUPROPION. [Concomitant]
     Active Substance: BUPROPION
  9. CEPHALEXIN [CEFALEXIN] [Concomitant]
     Active Substance: CEPHALEXIN
  10. GRANIX [Concomitant]
     Active Substance: TBO-FILGRASTIM
  11. ADDERALL [Concomitant]
     Active Substance: AMPHETAMINE ASPARTATE\AMPHETAMINE SULFATE\DEXTROAMPHETAMINE SACCHARATE\DEXTROAMPHETAMINE SULFATE
  12. REVLIMID [Concomitant]
     Active Substance: LENALIDOMIDE
     Dosage: 1 DF
  13. GABAPENTIN. [Concomitant]
     Active Substance: GABAPENTIN
  14. ATENOLOL. [Concomitant]
     Active Substance: ATENOLOL
  15. DOXYCYCLINE. [Concomitant]
     Active Substance: DOXYCYCLINE
  16. TRIAMCINOLONE [Concomitant]
     Active Substance: TRIAMCINOLONE
  17. OXYCODONE AND ACETAMINOPHEN [Concomitant]
     Active Substance: ACETAMINOPHEN\OXYCODONE HYDROCHLORIDE
  18. VALACYCLOVIR [Concomitant]
     Active Substance: VALACYCLOVIR HYDROCHLORIDE
  19. ATORVASTATIN [Concomitant]
     Active Substance: ATORVASTATIN
  20. MOMETASONE [Concomitant]
     Active Substance: MOMETASONE
  21. DUPIXENT [Suspect]
     Active Substance: DUPILUMAB
     Indication: DERMATITIS ATOPIC
     Dosage: 300 MG, QOW
     Route: 058
     Dates: start: 20200129
  22. EUCERIN [PARAFFIN, LIQUID;PETROLATUM;WOOL FAT] [Concomitant]
  23. ZYRTEC [Concomitant]
     Active Substance: CETIRIZINE HYDROCHLORIDE
  24. FLUOXETINE [Concomitant]
     Active Substance: FLUOXETINE HYDROCHLORIDE

REACTIONS (1)
  - Herpes zoster [Unknown]
